FAERS Safety Report 6357980-7 (Version None)
Quarter: 2009Q3

REPORT INFORMATION
  Report Type: 
  Country: None (occurrence: None)
  Receive Date: 20090916
  Receipt Date: 20090901
  Transmission Date: 20100115
  Serious: Yes (Other)
  Sender: FDA-Public Use
  Company Number: PL-ROCHE-654279

PATIENT
  Sex: Male
  Weight: 85 kg

DRUGS (1)
  1. BONIVA [Suspect]
     Indication: OSTEOPOROSIS
     Route: 042
     Dates: start: 20090424

REACTIONS (3)
  - BLOOD PRESSURE DECREASED [None]
  - FEELING ABNORMAL [None]
  - VERTIGO [None]
